FAERS Safety Report 24539582 (Version 2)
Quarter: 2025Q4

REPORT INFORMATION
  Report Type: Spontaneous
  Country: US (occurrence: US)
  Receive Date: 20241023
  Receipt Date: 20251118
  Transmission Date: 20260119
  Serious: Yes (Other)
  Sender: NOVARTIS
  Company Number: US-002147023-NVSC2024US206059

PATIENT
  Age: 63 Year
  Sex: Male

DRUGS (4)
  1. DEFERASIROX [Suspect]
     Active Substance: DEFERASIROX
     Indication: Serum ferritin increased
     Dosage: 720 MG, BID
     Route: 065
  2. DEFERASIROX [Suspect]
     Active Substance: DEFERASIROX
     Dosage: 720 MG, QD
     Route: 065
  3. DEFERASIROX [Suspect]
     Active Substance: DEFERASIROX
     Dosage: 360 MG, QD
     Route: 065
  4. DEFERASIROX [Suspect]
     Active Substance: DEFERASIROX
     Dosage: 360 MG, Q4W (360 MG 4X/WEEK)
     Route: 065

REACTIONS (1)
  - Retinopathy [Unknown]
